FAERS Safety Report 24538321 (Version 2)
Quarter: 2024Q4

REPORT INFORMATION
  Report Type: Spontaneous
  Country: DE (occurrence: DE)
  Receive Date: 20241023
  Receipt Date: 20241116
  Transmission Date: 20250115
  Serious: Yes (Life-Threatening, Hospitalization)
  Sender: BOEHRINGER INGELHEIM
  Company Number: DE-BoehringerIngelheim-2024-BI-058538

PATIENT
  Age: 63 Year
  Sex: Male

DRUGS (4)
  1. JARDIANCE [Suspect]
     Active Substance: EMPAGLIFLOZIN
     Indication: Type 2 diabetes mellitus
     Route: 048
     Dates: start: 20240305, end: 20240916
  2. METFORMIN HYDROCHLORIDE [Concomitant]
     Active Substance: METFORMIN HYDROCHLORIDE
     Indication: Type 2 diabetes mellitus
     Dosage: 1-0-1
     Route: 048
     Dates: start: 20140201
  3. TRULICITY [Concomitant]
     Active Substance: DULAGLUTIDE
     Indication: Type 2 diabetes mellitus
     Route: 058
     Dates: start: 20220303
  4. Torasemid 10 mg Tbl [Concomitant]
     Indication: Product used for unknown indication
     Route: 048

REACTIONS (2)
  - Genital infection fungal [Recovered/Resolved]
  - Candida sepsis [Recovered/Resolved]

NARRATIVE: CASE EVENT DATE: 20240916
